FAERS Safety Report 5847902-7 (Version None)
Quarter: 2008Q3

REPORT INFORMATION
  Report Type: 
  Country: None (occurrence: None)
  Receive Date: 20080818
  Receipt Date: 20080807
  Transmission Date: 20090109
  Serious: Yes (Death, Life-Threatening, Other)
  Sender: FDA-Public Use
  Company Number: GB-JNJFOC-20080801786

PATIENT
  Age: 65 Year
  Sex: Female
  Weight: 74 kg

DRUGS (9)
  1. REMICADE [Suspect]
     Indication: RHEUMATOID ARTHRITIS
     Route: 042
  2. METHOTREXATE [Concomitant]
  3. FERROUS SULFATE TAB [Concomitant]
  4. FOLIC ACID [Concomitant]
  5. LACTULOSE [Concomitant]
  6. LANSOPRAZOLE [Concomitant]
  7. ACETAMINOPHEN [Concomitant]
  8. TEMAZEPAM [Concomitant]
  9. TRAMADOL HCL [Concomitant]

REACTIONS (1)
  - DEATH [None]
